FAERS Safety Report 19936186 (Version 2)
Quarter: 2022Q1

REPORT INFORMATION
  Report Type: Report from Study
  Country: US (occurrence: US)
  Receive Date: 20211008
  Receipt Date: 20220115
  Transmission Date: 20220424
  Serious: Yes (Hospitalization, Other)
  Sender: FDA-Public Use
  Company Number: US-REGENERON PHARMACEUTICALS, INC.-2021-90998

PATIENT
  Age: 82 Year
  Sex: Male

DRUGS (1)
  1. CASIRIVIMAB\IMDEVIMAB [Suspect]
     Active Substance: CASIRIVIMAB\IMDEVIMAB
     Indication: COVID-19
     Dosage: 600 MG, SINGLE
     Route: 042
     Dates: start: 20210924, end: 20210924

REACTIONS (10)
  - Respiratory distress [Unknown]
  - Acute respiratory failure [Unknown]
  - COVID-19 pneumonia [Unknown]
  - Pleural effusion [Unknown]
  - Procalcitonin increased [Unknown]
  - Brain natriuretic peptide increased [Unknown]
  - Troponin increased [Unknown]
  - Fibrin D dimer increased [Unknown]
  - Activated partial thromboplastin time prolonged [Unknown]
  - Incorrect dose administered [Unknown]

NARRATIVE: CASE EVENT DATE: 20210924
